FAERS Safety Report 9767557 (Version 2)
Quarter: 2013Q4

REPORT INFORMATION
  Report Type: Report from Study
  Country: KR (occurrence: KR)
  Receive Date: 20131217
  Receipt Date: 20131217
  Transmission Date: 20140711
  Serious: Yes (Hospitalization)
  Sender: FDA-Public Use
  Company Number: KR-BAYER-2013-144577

PATIENT
  Age: 54 Year
  Sex: Male
  Weight: 59 kg

DRUGS (3)
  1. NEXAVAR [Suspect]
     Indication: HEPATOCELLULAR CARCINOMA
     Dosage: 800 MG, DAILY
     Route: 048
     Dates: start: 20131120, end: 20131125
  2. URSA [Concomitant]
     Dosage: 600 MG/DAY
     Route: 048
     Dates: start: 20130225
  3. LEGALON [Concomitant]
     Dosage: 420 MG/DAY
     Route: 048
     Dates: start: 20130225

REACTIONS (1)
  - Hepatic encephalopathy [Recovered/Resolved]
